FAERS Safety Report 16531598 (Version 1)
Quarter: 2019Q3

REPORT INFORMATION
  Report Type: Report from Study
  Country: CA (occurrence: CA)
  Receive Date: 20190704
  Receipt Date: 20190704
  Transmission Date: 20191004
  Serious: Yes (Other)
  Sender: FDA-Public Use
  Company Number: CA-TEVA-2019-CA-1071422

PATIENT
  Age: 38 Year
  Sex: Female
  Weight: 58 kg

DRUGS (13)
  1. SYNTHROID [Suspect]
     Active Substance: LEVOTHYROXINE SODIUM
     Dosage: 37 MICROGRAM DAILY;
     Route: 048
  2. SYNTHROID [Suspect]
     Active Substance: LEVOTHYROXINE SODIUM
     Dosage: 50 MILLIGRAM DAILY;
     Route: 048
  3. ASACOL [Suspect]
     Active Substance: MESALAMINE
     Dosage: 4800 MILLIGRAM DAILY;
     Route: 048
  4. PYRIDOXINE [Suspect]
     Active Substance: PYRIDOXINE
     Indication: NAUSEA
     Route: 065
  5. CELECOXIB. [Suspect]
     Active Substance: CELECOXIB
     Dosage: 10 MILLLIGRAM
     Route: 048
  6. ASACOL [Suspect]
     Active Substance: MESALAMINE
     Dosage: 3200 MILLIGRAM DAILY;
     Route: 048
  7. INFLIXIMAB [Suspect]
     Active Substance: INFLIXIMAB
     Indication: CROHN^S DISEASE
     Route: 042
  8. FLOVENT [Suspect]
     Active Substance: FLUTICASONE PROPIONATE
     Dosage: 2 DOSAGE FORMS DAILY;
     Route: 065
  9. LABETALOL [Suspect]
     Active Substance: LABETALOL\LABETALOL HYDROCHLORIDE
     Dosage: 300 MILLIGRAM DAILY;
     Route: 048
  10. LABETALOL [Suspect]
     Active Substance: LABETALOL\LABETALOL HYDROCHLORIDE
     Dosage: 40 MILLIGRAM DAILY;
     Route: 048
  11. FOLIC ACID. [Concomitant]
     Active Substance: FOLIC ACID
  12. PANTOPRAZOLE [Suspect]
     Active Substance: PANTOPRAZOLE
     Dosage: 1 DOSAGE FORMS DAILY;
     Route: 048
  13. CTP 30 [Suspect]
     Active Substance: CITALOPRAM HYDROBROMIDE
     Dosage: 15 MILLIGRAM DAILY;
     Route: 048

REACTIONS (5)
  - Caesarean section [Unknown]
  - Nausea [Unknown]
  - Diarrhoea [Unknown]
  - Frequent bowel movements [Unknown]
  - Exposure during pregnancy [Unknown]
